FAERS Safety Report 8559800-9 (Version None)
Quarter: 2012Q3

REPORT INFORMATION
  Report Type: 
  Country: None (occurrence: None)
  Receive Date: 20120802
  Receipt Date: 20120727
  Transmission Date: 20120928
  Serious: No
  Sender: FDA-Public Use
  Company Number: US-PFIZER INC-2012165969

PATIENT
  Sex: Male
  Weight: 73 kg

DRUGS (3)
  1. ADVIL COLD AND SINUS [Suspect]
     Indication: BRONCHITIS
     Dosage: 2 TABLETS ONCE
     Route: 048
     Dates: start: 20120709, end: 20120709
  2. FLOMAX [Concomitant]
     Dosage: 10 MG, DAILY
  3. ADVIL COLD AND SINUS [Suspect]
     Indication: SINUSITIS

REACTIONS (2)
  - PRURITUS [None]
  - URTICARIA [None]
